FAERS Safety Report 25702185 (Version 1)
Quarter: 2025Q3

REPORT INFORMATION
  Report Type: Spontaneous
  Country: BR (occurrence: BR)
  Receive Date: 20250819
  Receipt Date: 20250819
  Transmission Date: 20251021
  Serious: Yes (Other)
  Sender: INSUD PHARMA
  Company Number: BR-EXELTIS PHARMACEUTICAL HOLDING, S.L.-2507BR06361

PATIENT
  Age: 20 Year
  Sex: Female

DRUGS (1)
  1. DROSPIRENONE [Suspect]
     Active Substance: DROSPIRENONE
     Indication: Product used for unknown indication

REACTIONS (2)
  - Biochemical pregnancy [Not Recovered/Not Resolved]
  - Drug ineffective [Unknown]
